FAERS Safety Report 20172319 (Version 2)
Quarter: 2022Q1

REPORT INFORMATION
  Report Type: Spontaneous
  Country: JP (occurrence: JP)
  Receive Date: 20211210
  Receipt Date: 20220228
  Transmission Date: 20220423
  Serious: Yes (Other)
  Sender: FDA-Public Use
  Company Number: JP-PFIZER INC-202101665233

PATIENT
  Age: 82 Year
  Sex: Female

DRUGS (17)
  1. CELECOXIB [Suspect]
     Active Substance: CELECOXIB
     Indication: Intervertebral disc protrusion
     Dosage: 200 MG, 2X/DAY
     Route: 048
     Dates: end: 20131003
  2. CELECOXIB [Suspect]
     Active Substance: CELECOXIB
     Indication: Spondylolisthesis
     Dosage: 100 MG, 2X/DAY
     Route: 048
     Dates: start: 20131004, end: 20131015
  3. CELECOXIB [Suspect]
     Active Substance: CELECOXIB
     Dosage: 200 MG, 2X/DAY
     Route: 048
     Dates: start: 20131016, end: 20200326
  4. CELECOXIB [Suspect]
     Active Substance: CELECOXIB
     Dosage: 100 MG, 2X/DAY
     Route: 048
     Dates: start: 20200327, end: 20200424
  5. LOXOPROFEN SODIUM DIHYDRATE [Suspect]
     Active Substance: LOXOPROFEN SODIUM DIHYDRATE
     Indication: Intervertebral disc protrusion
     Dosage: 60 MG, AS NEEDED
     Route: 048
     Dates: start: 20160914, end: 20180718
  6. LOXOPROFEN SODIUM DIHYDRATE [Suspect]
     Active Substance: LOXOPROFEN SODIUM DIHYDRATE
     Indication: Spondylolisthesis
     Dosage: 60 MG, 1X/DAY
     Route: 048
     Dates: start: 20180719, end: 20200509
  7. LOXOPROFEN SODIUM DIHYDRATE [Suspect]
     Active Substance: LOXOPROFEN SODIUM DIHYDRATE
     Dosage: 60 MG, AS NEEDED
     Route: 048
     Dates: start: 20200510, end: 20210131
  8. JANUVIA [Concomitant]
     Active Substance: SITAGLIPTIN PHOSPHATE
     Indication: Diabetes mellitus
     Dosage: 50 MG, 1X/DAY
     Route: 048
     Dates: start: 20191207
  9. OMEPRAZOLE AMEL [OMEPRAZOLE] [Concomitant]
     Dosage: 20 MG, 1X/DAY
     Route: 048
     Dates: start: 20190321
  10. VESICARE [Concomitant]
     Active Substance: SOLIFENACIN SUCCINATE
     Indication: Hypertonic bladder
     Dosage: 5 MG, 1X/DAY
     Route: 048
     Dates: start: 20170216
  11. ETHYL ICOSAPENTATE NICHIIKO [Concomitant]
     Dosage: 600 MG, 3X/DAY
     Route: 048
     Dates: start: 20170519
  12. XYZAL [Concomitant]
     Active Substance: LEVOCETIRIZINE DIHYDROCHLORIDE
     Route: 048
  13. NICO [TOCOPHERYL NICOTINATE] [Concomitant]
     Route: 048
  14. PANTETHINE YD [Concomitant]
     Route: 048
  15. BEPOTASTINE BESILATE OD [Concomitant]
     Route: 048
  16. PIRENOXINE [Concomitant]
     Active Substance: PIRENOXINE
     Indication: Cataract
     Dosage: UNK
     Route: 047
  17. HYALURONATE SODIUM [Concomitant]
     Active Substance: HYALURONATE SODIUM
     Indication: Dry eye
     Dosage: UNK
     Route: 047

REACTIONS (7)
  - Gastric ulcer [Unknown]
  - Gastritis erosive [Unknown]
  - Duodenal ulcer [Unknown]
  - Anaemia [Recovered/Resolved]
  - Chronic gastritis [Unknown]
  - Helicobacter infection [Unknown]
  - Off label use [Unknown]

NARRATIVE: CASE EVENT DATE: 20200330
